FAERS Safety Report 14742477 (Version 2)
Quarter: 2018Q2

REPORT INFORMATION
  Report Type: Spontaneous
  Country: IT (occurrence: IT)
  Receive Date: 20180410
  Receipt Date: 20180423
  Transmission Date: 20180711
  Serious: Yes (Hospitalization)
  Sender: FDA-Public Use
  Company Number: IT-BAYER-2018-065651

PATIENT
  Age: 91 Year
  Sex: Female

DRUGS (3)
  1. SELEPARINA [Concomitant]
     Active Substance: NADROPARIN CALCIUM
     Dosage: 1 DF, UNK
  2. TRIATEC (RAMIPRIL) [Concomitant]
     Active Substance: RAMIPRIL
     Dosage: 1.25 MG, UNK
  3. CIPROXIN 500/5 MG/ML [Suspect]
     Active Substance: CIPROFLOXACIN
     Indication: CYSTITIS
     Dosage: 750 MG, UNK
     Route: 048
     Dates: start: 20180316, end: 20180321

REACTIONS (2)
  - Hypoplastic anaemia [Recovering/Resolving]
  - Bone marrow failure [Recovering/Resolving]

NARRATIVE: CASE EVENT DATE: 20180326
